FAERS Safety Report 4399706-2 (Version None)
Quarter: 2004Q3

REPORT INFORMATION
  Report Type: 
  Country: None (occurrence: None)
  Receive Date: 20040715
  Receipt Date: 20040701
  Transmission Date: 20050211
  Serious: Yes (Hospitalization)
  Sender: FDA-Public Use
  Company Number: A-CH2004-06136

PATIENT
  Age: 70 Year
  Sex: Male

DRUGS (6)
  1. TRACLEER [Suspect]
     Indication: PULMONARY HYPERTENSION
     Dosage: SEE IMAGE
     Route: 048
     Dates: start: 20030408, end: 20030101
  2. TRACLEER [Suspect]
     Indication: PULMONARY HYPERTENSION
     Dosage: SEE IMAGE
     Route: 048
     Dates: start: 20030101, end: 20031002
  3. PREVISCAN (FLUINDIONE) [Concomitant]
  4. POTASSIUM CHLORIDE [Concomitant]
  5. DIURETICS [Concomitant]
  6. DIGOXIN [Concomitant]

REACTIONS (11)
  - ASCITES [None]
  - CARDIAC FAILURE [None]
  - GENERALISED OEDEMA [None]
  - HEPATIC CONGESTION [None]
  - HEPATIC FIBROSIS [None]
  - HEPATOMEGALY [None]
  - HYPERURICAEMIA [None]
  - HYPOXIA [None]
  - JAUNDICE [None]
  - PORTAL HYPERTENSION [None]
  - VARICES OESOPHAGEAL [None]
